FAERS Safety Report 5026854-6 (Version None)
Quarter: 2006Q2

REPORT INFORMATION
  Report Type: 
  Country: None (occurrence: None)
  Receive Date: 20060608
  Receipt Date: 20060526
  Transmission Date: 20061013
  Serious: Yes (Hospitalization, Other)
  Sender: FDA-Public Use
  Company Number: 2006069605

PATIENT
  Sex: Female

DRUGS (1)
  1. DEPO-PROVERA [Suspect]
     Indication: CONTRACEPTION
     Dosage: 150 MG 150 MG, 1 IN 1 TRIMESTER), INTRAMUSCULAR
     Route: 030

REACTIONS (8)
  - DRUG EXPOSURE DURING PREGNANCY [None]
  - FALL [None]
  - HAEMORRHAGE [None]
  - MALAISE [None]
  - PREGNANCY [None]
  - PREGNANCY WITH INJECTABLE CONTRACEPTIVE [None]
  - UTERINE SPASM [None]
  - VAGINAL HAEMORRHAGE [None]
